FAERS Safety Report 5380439-0 (Version None)
Quarter: 2007Q3

REPORT INFORMATION
  Report Type: 
  Country: None (occurrence: None)
  Receive Date: 20070706
  Receipt Date: 20070530
  Transmission Date: 20080115
  Serious: No
  Sender: FDA-Public Use
  Company Number: A0653502A

PATIENT
  Age: 58 Year
  Sex: Female

DRUGS (5)
  1. TYKERB [Suspect]
     Indication: BREAST CANCER
     Dosage: 5TAB PER DAY
     Route: 048
     Dates: start: 20070424
  2. HYZAAR [Concomitant]
  3. AMLODIPINE [Concomitant]
  4. AROMASIN [Concomitant]
  5. ASPIRIN [Concomitant]

REACTIONS (6)
  - ABDOMINAL DISTENSION [None]
  - DIARRHOEA [None]
  - DISCOMFORT [None]
  - FLATULENCE [None]
  - GASTROINTESTINAL DISORDER [None]
  - NAUSEA [None]
